FAERS Safety Report 20223271 (Version 1)
Quarter: 2021Q4

REPORT INFORMATION
  Report Type: Spontaneous
  Country: US (occurrence: US)
  Receive Date: 20211223
  Receipt Date: 20211223
  Transmission Date: 20220303
  Serious: No
  Sender: FDA-Public Use
  Company Number: US-KYOWAKIRIN-2021BKK021152

PATIENT

DRUGS (2)
  1. NOURIANZ [Suspect]
     Active Substance: ISTRADEFYLLINE
     Indication: Parkinson^s disease
     Dosage: 20 MG DAILY
     Route: 048
  2. CARBIDOPA\LEVODOPA [Suspect]
     Active Substance: CARBIDOPA\LEVODOPA
     Indication: Product used for unknown indication
     Dosage: 1 TAB EVERY 4 HOURS STARTING AT 5 AM
     Route: 065

REACTIONS (5)
  - Heart rate increased [Unknown]
  - Bradykinesia [Unknown]
  - Dyskinesia [Unknown]
  - Insomnia [Unknown]
  - Therapy non-responder [Unknown]
